FAERS Safety Report 14187979 (Version 1)
Quarter: 2017Q4

REPORT INFORMATION
  Report Type: Spontaneous
  Country: JP (occurrence: JP)
  Receive Date: 20171114
  Receipt Date: 20171114
  Transmission Date: 20180321
  Serious: Yes (Other)
  Sender: FDA-Public Use
  Company Number: PHJP2017JP033068

PATIENT
  Sex: Male

DRUGS (2)
  1. IMATINIB [Suspect]
     Active Substance: IMATINIB
     Dosage: 100 MG, QD
     Route: 048
  2. IMATINIB [Suspect]
     Active Substance: IMATINIB
     Indication: CHRONIC MYELOID LEUKAEMIA
     Dosage: 400 MG, QD
     Route: 048

REACTIONS (8)
  - Dysstasia [Unknown]
  - Renal impairment [Unknown]
  - Rash [Unknown]
  - Arthralgia [Recovering/Resolving]
  - Drug withdrawal syndrome [Unknown]
  - Oedema [Unknown]
  - Muscle spasms [Unknown]
  - Malaise [Recovering/Resolving]
